FAERS Safety Report 8813943 (Version 3)
Quarter: 2014Q3

REPORT INFORMATION
  Report Type: Report from Study
  Country: US (occurrence: US)
  Receive Date: 20120928
  Receipt Date: 20140818
  Transmission Date: 20150326
  Serious: Yes (Death, Hospitalization)
  Sender: FDA-Public Use
  Company Number: US-ROCHE-1129719

PATIENT
  Age: 62 Year
  Sex: Male

DRUGS (2)
  1. HERCEPTIN [Suspect]
     Active Substance: TRASTUZUMAB
     Indication: BREAST CANCER MALE
     Route: 065
     Dates: start: 20090723, end: 20110215
  2. HERCEPTIN [Suspect]
     Active Substance: TRASTUZUMAB
     Indication: BREAST CANCER METASTATIC

REACTIONS (6)
  - Atrial fibrillation [Unknown]
  - Hepatic failure [Unknown]
  - Pneumonia [Fatal]
  - Hyperglycaemia [Unknown]
  - Thrombocytopenia [Unknown]
  - Breast cancer [Fatal]

NARRATIVE: CASE EVENT DATE: 20110408
